FAERS Safety Report 5040622-0 (Version None)
Quarter: 2006Q2

REPORT INFORMATION
  Report Type: 
  Country: None (occurrence: None)
  Receive Date: 20060626
  Receipt Date: 20060626
  Transmission Date: 20061013
  Serious: No
  Sender: FDA-Public Use
  Company Number: None

PATIENT
  Sex: Male
  Weight: 56.3 kg

DRUGS (2)
  1. GEMCITABINE [Suspect]
     Dosage: 1770 MG
  2. TAXOL [Suspect]
     Dosage: 216 MG

REACTIONS (1)
  - MUSCULAR WEAKNESS [None]
